FAERS Safety Report 9676360 (Version 1)
Quarter: 2013Q4

REPORT INFORMATION
  Report Type: Spontaneous
  Country: DE (occurrence: DE)
  Receive Date: 20131107
  Receipt Date: 20131107
  Transmission Date: 20140711
  Serious: Yes (Death)
  Sender: FDA-Public Use
  Company Number: DE-ROCHE-1297216

PATIENT
  Sex: Female

DRUGS (5)
  1. PERJETA [Suspect]
     Indication: BREAST CANCER METASTATIC
     Route: 065
     Dates: start: 20130701
  2. HERCEPTIN [Suspect]
     Indication: BREAST CANCER METASTATIC
     Route: 065
     Dates: start: 20130701
  3. TAXOTERE [Suspect]
     Indication: BREAST CANCER METASTATIC
     Route: 065
     Dates: start: 20130701
  4. ERIBULIN [Suspect]
     Indication: BREAST CANCER METASTATIC
     Route: 065
     Dates: start: 20130808
  5. LAPATINIB [Suspect]
     Indication: BREAST CANCER METASTATIC
     Route: 065
     Dates: start: 20130808

REACTIONS (2)
  - Atypical pneumonia [Fatal]
  - Malignant neoplasm progression [Unknown]
